FAERS Safety Report 21792422 (Version 1)
Quarter: 2022Q4

REPORT INFORMATION
  Report Type: Spontaneous
  Country: BR (occurrence: BR)
  Receive Date: 20221229
  Receipt Date: 20221229
  Transmission Date: 20230113
  Serious: Yes (Other)
  Sender: FDA-Public Use
  Company Number: BR-002147023-NVSC2022BR298821

PATIENT
  Age: 14 Year
  Sex: Male

DRUGS (1)
  1. OMNITROPE [Suspect]
     Active Substance: SOMATROPIN
     Indication: Attention deficit hyperactivity disorder
     Dosage: 2 MG, QD (AMPOULE)
     Route: 065
     Dates: start: 202211

REACTIONS (2)
  - Growth failure [Unknown]
  - Off label use [Unknown]
